FAERS Safety Report 22618952 (Version 1)
Quarter: 2023Q2

REPORT INFORMATION
  Report Type: Spontaneous
  Country: US (occurrence: US)
  Receive Date: 20230620
  Receipt Date: 20230620
  Transmission Date: 20230722
  Serious: Yes (Hospitalization, Other)
  Sender: FDA-Public Use
  Company Number: US-MLMSERVICE-20230605-4329825-1

PATIENT
  Age: 65 Year
  Sex: Female

DRUGS (3)
  1. METHYLPREDNISOLONE [Suspect]
     Active Substance: METHYLPREDNISOLONE
     Indication: Engraftment syndrome
     Dosage: 1 MILLIGRAM/KILOGRAM, ONCE A DAY (ON DAY?+?16)
     Route: 065
     Dates: start: 2022
  2. POSACONAZOLE [Concomitant]
     Active Substance: POSACONAZOLE
     Indication: Antifungal prophylaxis
     Dosage: 300 MILLIGRAM (ON DAY?+?8)
     Route: 065
     Dates: start: 2022
  3. KETOCONAZOLE [Concomitant]
     Active Substance: KETOCONAZOLE
     Indication: Nail bed disorder
     Dosage: UNK
     Route: 065

REACTIONS (7)
  - Staphylococcal infection [Recovering/Resolving]
  - Scedosporium infection [Recovering/Resolving]
  - Delirium [Recovering/Resolving]
  - Paronychia [Recovering/Resolving]
  - Brain abscess [Recovering/Resolving]
  - Osteomyelitis [Recovering/Resolving]
  - Condition aggravated [Recovering/Resolving]

NARRATIVE: CASE EVENT DATE: 20220101
